FAERS Safety Report 13425237 (Version 2)
Quarter: 2017Q2

REPORT INFORMATION
  Report Type: Spontaneous
  Country: CH (occurrence: CH)
  Receive Date: 20170411
  Receipt Date: 20170503
  Transmission Date: 20170830
  Serious: Yes (Hospitalization)
  Sender: FDA-Public Use
  Company Number: PHHY2017CH050831

PATIENT
  Sex: Female

DRUGS (8)
  1. TAFINLAR [Suspect]
     Active Substance: DABRAFENIB MESYLATE
     Indication: METASTATIC MALIGNANT MELANOMA
     Dosage: UNK UNK, BID
     Route: 048
     Dates: start: 20160407, end: 20170331
  2. ATORVASTATIN [Concomitant]
     Active Substance: ATORVASTATIN
     Indication: HYPERTRIGLYCERIDAEMIA
     Dosage: UNK UNK, QD (1-0-0)
     Route: 048
     Dates: start: 2015
  3. METO ZEROK [Concomitant]
     Active Substance: METOPROLOL SUCCINATE
     Indication: HYPERTENSION
     Dosage: UNK UNK, QD (1-0-0)
     Route: 048
     Dates: start: 2015
  4. MEKINIST [Suspect]
     Active Substance: TRAMETINIB DIMETHYL SULFOXIDE
     Indication: METASTATIC MALIGNANT MELANOMA
     Dosage: UNK, QD
     Route: 048
     Dates: start: 20160407, end: 20170331
  5. TEMESTA [Concomitant]
     Active Substance: LORAZEPAM
     Indication: SLEEP DISORDER
     Dosage: UNK UNK, QD (0-0-0-1)
     Route: 048
     Dates: start: 2016
  6. TAFINLAR [Suspect]
     Active Substance: DABRAFENIB MESYLATE
     Dosage: UNK
     Route: 048
     Dates: start: 20170402
  7. MEKINIST [Suspect]
     Active Substance: TRAMETINIB DIMETHYL SULFOXIDE
     Dosage: UNK
     Route: 048
     Dates: start: 20170402
  8. CERAZETTE [Concomitant]
     Active Substance: DESOGESTREL
     Indication: CONTRACEPTION
     Dosage: UNK UNK, QD (1-0-0)
     Route: 048
     Dates: start: 2015

REACTIONS (5)
  - Cerebral ischaemia [Recovered/Resolved]
  - Epilepsy [Recovered/Resolved]
  - Cerebrovascular accident [Recovering/Resolving]
  - Therapy partial responder [Recovering/Resolving]
  - Meningioma [Recovering/Resolving]

NARRATIVE: CASE EVENT DATE: 201609
